FAERS Safety Report 5596960-6 (Version None)
Quarter: 2007Q4

REPORT INFORMATION
  Report Type: 
  Country: None (occurrence: None)
  Receive Date: 20071220
  Receipt Date: 20070726
  Transmission Date: 20080405
  Serious: Yes (Hospitalization)
  Sender: FDA-Public Use
  Company Number: 260501

PATIENT
  Age: 60 Year
  Sex: Female
  Weight: 96.6 kg

DRUGS (7)
  1. NOVOLOG MIX 70/30 [Suspect]
     Indication: INSULIN-REQUIRING TYPE II DIABETES MELLITUS
     Dosage: 80 IU, QD (AM), SUBCUTANEOUS 70 IU, QD (PM), SUBCUTANEOUS
     Route: 058
     Dates: start: 20061001
  2. NOVOLOG [Suspect]
     Indication: INSULIN-REQUIRING TYPE II DIABETES MELLITUS
     Dosage: SUBCUTANEOUS
     Route: 058
  3. MONOPRIL [Concomitant]
  4. LIPITOR [Concomitant]
  5. COUMADIN [Concomitant]
  6. IRON (IRON) [Concomitant]
  7. GLUCOPHAGE /00082701/ (METFORMIN) [Concomitant]

REACTIONS (1)
  - BLOOD GLUCOSE INCREASED [None]
